FAERS Safety Report 9497885 (Version 1)
Quarter: 2013Q3

REPORT INFORMATION
  Report Type: Spontaneous
  Country: GB (occurrence: None)
  Receive Date: 20130830
  Receipt Date: 20130830
  Transmission Date: 20140515
  Serious: Yes (Hospitalization, Other)
  Sender: FDA-Public Use
  Company Number: GER/UKI/13/0034258

PATIENT
  Age: 88 Year
  Sex: Female

DRUGS (6)
  1. OMEPRAZOLE (OMEPRAZOLE) [Suspect]
     Indication: PRODUCT USED FOR UNKNOWN INDICATION
     Route: 048
  2. AMLODIPINE (AMLODIPINE) [Concomitant]
  3. ATENOLOL (ATENOLOL) [Concomitant]
  4. CALCICHEW D3 (LEKOVIT CA) [Concomitant]
  5. FERROUS FUMARATE (FERROUS FUMARATE) [Concomitant]
  6. PARACETAMOL (PARAACETAMOL) [Concomitant]

REACTIONS (13)
  - Fatigue [None]
  - Local swelling [None]
  - Lethargy [None]
  - Lower respiratory tract infection [None]
  - Atrial fibrillation [None]
  - Decreased appetite [None]
  - Mobility decreased [None]
  - Cough [None]
  - Fluid intake reduced [None]
  - Hepatomegaly [None]
  - Dyspnoea exertional [None]
  - Hyponatraemia [None]
  - Malaise [None]
